FAERS Safety Report 22265743 (Version 4)
Quarter: 2023Q4

REPORT INFORMATION
  Report Type: Report from Study
  Country: US (occurrence: US)
  Receive Date: 20230428
  Receipt Date: 20231108
  Transmission Date: 20240110
  Serious: Yes (Hospitalization, Other)
  Sender: FDA-Public Use
  Company Number: US-JNJFOC-20230449866

PATIENT
  Age: 60 Year
  Sex: Male
  Weight: 79.4 kg

DRUGS (3)
  1. AMIVANTAMAB [Suspect]
     Active Substance: AMIVANTAMAB
     Indication: Non-small cell lung cancer
     Dosage: FREQUENCY: EVERY WEEK/ EVERY Q2 WEEKS?DOSE ALSO REPORTED AS 700 UNITS UNSPECIFIED.
     Route: 042
     Dates: start: 20220127, end: 20230309
  2. AMIVANTAMAB [Suspect]
     Active Substance: AMIVANTAMAB
     Route: 042
     Dates: start: 20220519
  3. ATORVASTATIN [Concomitant]
     Active Substance: ATORVASTATIN
     Indication: Blood cholesterol increased
     Route: 048
     Dates: start: 20230419

REACTIONS (3)
  - Skin ulcer [Not Recovered/Not Resolved]
  - Gait disturbance [Not Recovered/Not Resolved]
  - Bacteraemia [Recovered/Resolved]

NARRATIVE: CASE EVENT DATE: 20230418
